FAERS Safety Report 21055621 (Version 2)
Quarter: 2022Q3

REPORT INFORMATION
  Report Type: Report from Study
  Country: US (occurrence: US)
  Receive Date: 20220708
  Receipt Date: 20220815
  Transmission Date: 20221027
  Serious: Yes (Hospitalization, Other)
  Sender: FDA-Public Use
  Company Number: US-NOVARTISPH-NVSC2022US151856

PATIENT
  Sex: Male

DRUGS (2)
  1. TASIGNA [Suspect]
     Active Substance: NILOTINIB
     Indication: Product used for unknown indication
     Dosage: UNK
     Route: 048
  2. TASIGNA [Suspect]
     Active Substance: NILOTINIB
     Dosage: 1 PILL IN AM AND 1 PILL IN PM
     Route: 065

REACTIONS (10)
  - COVID-19 [Unknown]
  - Ageusia [Unknown]
  - Feeding disorder [Unknown]
  - Dehydration [Unknown]
  - Loss of consciousness [Not Recovered/Not Resolved]
  - Renal disorder [Unknown]
  - Swelling [Unknown]
  - Fluid retention [Unknown]
  - Fall [Not Recovered/Not Resolved]
  - Dizziness [Not Recovered/Not Resolved]
